FAERS Safety Report 15417355 (Version 1)
Quarter: 2018Q3

REPORT INFORMATION
  Report Type: Spontaneous
  Country: US (occurrence: US)
  Receive Date: 20180924
  Receipt Date: 20180924
  Transmission Date: 20181010
  Serious: Yes (Other)
  Sender: FDA-Public Use
  Company Number: US-BAYER-2018-171617

PATIENT
  Sex: Female
  Weight: 57 kg

DRUGS (5)
  1. ALEVE [Concomitant]
     Active Substance: NAPROXEN SODIUM
     Dosage: UNK
  2. BAYER LOW DOSE [Suspect]
     Active Substance: ASPIRIN
     Indication: CARDIAC STRESS TEST ABNORMAL
     Dosage: 1 DF, QD
     Route: 048
     Dates: start: 2014
  3. IRON [Concomitant]
     Active Substance: IRON
     Dosage: UNK
  4. BAYER LOW DOSE [Suspect]
     Active Substance: ASPIRIN
     Indication: ELECTROCARDIOGRAM
  5. BAYER ASPIRIN [Suspect]
     Active Substance: ASPIRIN
     Dosage: 1 DF, QD
     Route: 048
     Dates: start: 2001

REACTIONS (4)
  - Anaemia [Not Recovered/Not Resolved]
  - Gastrointestinal haemorrhage [Recovered/Resolved]
  - Product use in unapproved indication [Unknown]
  - Off label use [None]

NARRATIVE: CASE EVENT DATE: 2001
